FAERS Safety Report 17180896 (Version 1)
Quarter: 2019Q4

REPORT INFORMATION
  Report Type: Spontaneous
  Country: US (occurrence: US)
  Receive Date: 20191219
  Receipt Date: 20191219
  Transmission Date: 20200122
  Serious: No
  Sender: FDA-Public Use
  Company Number: US-UCBSA-074550

PATIENT
  Age: 59 Year
  Sex: Female
  Weight: 49.89 kg

DRUGS (3)
  1. ULTRAM [Concomitant]
     Active Substance: TRAMADOL HYDROCHLORIDE
     Indication: PAIN
     Dosage: DOSE: 50 MG, FREQUENCY: Q 6 O^CLOCK AS NECESSARY
     Dates: start: 2010
  2. PENTASA [Concomitant]
     Active Substance: MESALAMINE
     Indication: CROHN^S DISEASE
     Dosage: 1000 MG, 2X/DAY (BID)
     Dates: start: 2009
  3. CIMZIA [Suspect]
     Active Substance: CERTOLIZUMAB PEGOL
     Indication: CROHN^S DISEASE
     Dosage: EXPIRY DATE- FEB-2016, MAR-2016
     Dates: start: 20110120

REACTIONS (3)
  - Cystitis [Not Recovered/Not Resolved]
  - Influenza [Not Recovered/Not Resolved]
  - Sinusitis [Not Recovered/Not Resolved]

NARRATIVE: CASE EVENT DATE: 20130107
